FAERS Safety Report 9440490 (Version 2)
Quarter: 2013Q3

REPORT INFORMATION
  Report Type: Spontaneous
  Country: US (occurrence: None)
  Receive Date: 20130801
  Receipt Date: 20130809
  Transmission Date: 20140515
  Serious: Yes (Death)
  Sender: FDA-Public Use
  Company Number: ADR-2013-01261

PATIENT
  Age: 65 Year
  Sex: Female

DRUGS (1)
  1. COMPOUNDED BACLOFEN (INTRATHECAL) - 2000 MCG/ML [Suspect]
     Indication: MUSCLE SPASTICITY

REACTIONS (1)
  - Death [None]
